FAERS Safety Report 8313385-0 (Version None)
Quarter: 2012Q2

REPORT INFORMATION
  Report Type: 
  Country: None (occurrence: None)
  Receive Date: 20120425
  Receipt Date: 20120425
  Transmission Date: 20120825
  Serious: Yes (Hospitalization, Disabling, Other)
  Sender: FDA-Public Use
  Company Number: None

PATIENT
  Sex: Male
  Weight: 60.782 kg

DRUGS (1)
  1. DELSYM [Suspect]
     Indication: COUGH
     Dosage: 1 TEASPOON 12HRS APART 8AM - 8PM SAT, SUNDAY
     Dates: start: 20120219, end: 20120220

REACTIONS (2)
  - EYE MOVEMENT DISORDER [None]
  - DYSARTHRIA [None]
